FAERS Safety Report 5866688-3 (Version None)
Quarter: 2008Q3

REPORT INFORMATION
  Report Type: 
  Country: None (occurrence: None)
  Receive Date: 20080828
  Receipt Date: 20080828
  Transmission Date: 20090109
  Serious: Yes (Life-Threatening, Hospitalization)
  Sender: FDA-Public Use
  Company Number: None

PATIENT
  Age: 12 Year
  Sex: Female
  Weight: 51 kg

DRUGS (4)
  1. FLUOXETINE [Suspect]
     Indication: DEPRESSION
     Dosage: 10 MG QD PO
     Route: 048
     Dates: start: 20080501, end: 20080822
  2. FLUOXETINE [Suspect]
     Indication: SUICIDAL IDEATION
     Dosage: 10 MG QD PO
     Route: 048
     Dates: start: 20080501, end: 20080822
  3. FLUOXETINE [Suspect]
     Indication: DEPRESSION
     Dosage: 10 MG QD PO
     Route: 048
     Dates: start: 20080823, end: 20080823
  4. FLUOXETINE [Suspect]
     Indication: SUICIDAL IDEATION
     Dosage: 10 MG QD PO
     Route: 048
     Dates: start: 20080823, end: 20080823

REACTIONS (7)
  - AGITATION [None]
  - COMA [None]
  - INCORRECT DOSE ADMINISTERED [None]
  - NODAL RHYTHM [None]
  - POSTURE ABNORMAL [None]
  - PYREXIA [None]
  - RESPIRATION ABNORMAL [None]
